FAERS Safety Report 14296623 (Version 1)
Quarter: 2017Q4

REPORT INFORMATION
  Report Type: Spontaneous
  Country: CA (occurrence: CA)
  Receive Date: 20171218
  Receipt Date: 20171218
  Transmission Date: 20180321
  Serious: Yes (Hospitalization)
  Sender: FDA-Public Use
  Company Number: CA-JNJFOC-20171210379

PATIENT
  Age: 28 Year
  Sex: Male

DRUGS (3)
  1. NICOTINE. [Concomitant]
     Active Substance: NICOTINE
     Dosage: REPLACEMENT THERAPY
     Route: 065
  2. INVEGA TRINZA [Suspect]
     Active Substance: PALIPERIDONE PALMITATE
     Indication: PRODUCT USED FOR UNKNOWN INDICATION
     Route: 030
  3. LORAZEPAM. [Concomitant]
     Active Substance: LORAZEPAM
     Indication: AGITATION
     Route: 065

REACTIONS (3)
  - Hospitalisation [Unknown]
  - Drug resistance [Unknown]
  - Condition aggravated [Unknown]

NARRATIVE: CASE EVENT DATE: 201706
